FAERS Safety Report 5211128-0 (Version None)
Quarter: 2006Q4

REPORT INFORMATION
  Report Type: 
  Country: None (occurrence: None)
  Receive Date: 20061114
  Receipt Date: 20060719
  Transmission Date: 20070319
  Serious: No
  Sender: FDA-Public Use
  Company Number: S06-USA-02810-01

PATIENT
  Age: 76 Year
  Sex: Female

DRUGS (5)
  1. NAMENDA [Suspect]
     Indication: MEMORY IMPAIRMENT
     Dosage: 5 MG QD PO
     Route: 048
     Dates: start: 20060714
  2. PLAVIS (CLOPIDOGREL SULFATE) [Concomitant]
  3. VYTORIN [Concomitant]
  4. CEREFOLIN WITH NAC (L-METHYLFOATE/METHYLCOBALAMIN/N-ACETYLCYSTEINE) [Concomitant]
  5. ASPIRIN [Concomitant]

REACTIONS (1)
  - DIZZINESS [None]
